FAERS Safety Report 16184982 (Version 9)
Quarter: 2024Q2

REPORT INFORMATION
  Report Type: Spontaneous
  Country: US (occurrence: US)
  Receive Date: 20190411
  Receipt Date: 20240409
  Transmission Date: 20240716
  Serious: No
  Sender: FDA-Public Use
  Company Number: US-PFIZER INC-2019154601

PATIENT
  Age: 67 Year
  Sex: Male

DRUGS (6)
  1. BOSULIF [Suspect]
     Active Substance: BOSUTINIB MONOHYDRATE
     Indication: Chronic myeloid leukaemia
     Dosage: 500 MG, DAILY
     Route: 048
  2. BOSULIF [Suspect]
     Active Substance: BOSUTINIB MONOHYDRATE
     Dosage: 100 MG, DAILY
     Route: 048
  3. BOSULIF [Suspect]
     Active Substance: BOSUTINIB MONOHYDRATE
     Dosage: 500 MG, DAILY (500 MG EVERYDAY)
  4. BOSULIF [Suspect]
     Active Substance: BOSUTINIB MONOHYDRATE
     Dosage: TK 1 100MG AND 1 500 MG TABLETS BY MOUTH EVERYDAY.
     Route: 048
  5. BOSULIF [Suspect]
     Active Substance: BOSUTINIB MONOHYDRATE
     Dosage: TAKE 1 TABLET (100 MG) BY MOUTH ONCE DAILY. WITH 500 MG TAB FOR TOTAL DAILY DOSE OF 600 MG
     Route: 048
     Dates: start: 20240403
  6. BOSULIF [Suspect]
     Active Substance: BOSUTINIB MONOHYDRATE
     Dosage: TAKE 1 TABLET (500 MG) BY MOUTH ONCE DAILY. WITH 100 MG TAB FOR TOTAL DAILY DOSE OF 600 MG
     Route: 048
     Dates: start: 20240403

REACTIONS (3)
  - Vomiting [Unknown]
  - Sleep disorder [Unknown]
  - Product dose omission issue [Unknown]
